FAERS Safety Report 4459871-5 (Version None)
Quarter: 2004Q3

REPORT INFORMATION
  Report Type: 
  Country: None (occurrence: None)
  Receive Date: 20040928
  Receipt Date: 20030722
  Transmission Date: 20050211
  Serious: No
  Sender: FDA-Public Use
  Company Number: US-GLAXOSMITHKLINE-A0418628A

PATIENT
  Age: 93 Year
  Sex: Female

DRUGS (14)
  1. SEREVENT [Suspect]
     Dosage: 2PUFF TWICE PER DAY
     Route: 055
     Dates: start: 20030725
  2. FIBER CON [Concomitant]
  3. VITAMIN E [Concomitant]
  4. OCUVITE [Concomitant]
  5. TOPROL-XL [Concomitant]
  6. FORMULA 303 [Concomitant]
  7. ASPIRIN [Concomitant]
  8. GLUCOSAMINE [Concomitant]
  9. VIOXX [Concomitant]
  10. PHILLIPS [Concomitant]
  11. ZANTAC [Concomitant]
  12. CORYZA VACCINE [Concomitant]
  13. CHONDROITIN [Concomitant]
  14. UNKNOWN MEDICATION [Concomitant]

REACTIONS (2)
  - BALANCE DISORDER [None]
  - NAUSEA [None]
